FAERS Safety Report 13251706 (Version 2)
Quarter: 2017Q1

REPORT INFORMATION
  Report Type: Spontaneous
  Country: US (occurrence: US)
  Receive Date: 20170220
  Receipt Date: 20170316
  Transmission Date: 20170428
  Serious: No
  Sender: FDA-Public Use
  Company Number: US-PFIZER INC-2017061491

PATIENT
  Sex: Female

DRUGS (2)
  1. LETROZOLE. [Suspect]
     Active Substance: LETROZOLE
     Dosage: UNK
  2. IBRANCE [Suspect]
     Active Substance: PALBOCICLIB
     Indication: BREAST CANCER FEMALE
     Dosage: 125 MG, CYCLIC [EVERY DAY FOR 21 DAYS THEN TAKE 7 DAYS OFF AS DIRECTED]
     Route: 048
     Dates: start: 20170120

REACTIONS (8)
  - Nausea [Unknown]
  - Fatigue [Unknown]
  - Stomatitis [Unknown]
  - Pain [Unknown]
  - Pyrexia [Unknown]
  - Viral infection [Unknown]
  - White blood cell count decreased [Unknown]
  - Alopecia [Unknown]
